FAERS Safety Report 25996989 (Version 1)
Quarter: 2025Q4

REPORT INFORMATION
  Report Type: Report from Study
  Country: GB (occurrence: GB)
  Receive Date: 20251104
  Receipt Date: 20251104
  Transmission Date: 20260117
  Serious: Yes (Other)
  Sender: ABBVIE
  Company Number: GB-ABBVIE-6528767

PATIENT
  Sex: Female

DRUGS (1)
  1. SKYRIZI [Suspect]
     Active Substance: RISANKIZUMAB-RZAA
     Indication: Psoriasis
     Dosage: SKYRIZI 150MG/1ML, 1 PRE-FILLED DISPOSABLE INJECTION
     Route: 058
     Dates: start: 20240912, end: 202501

REACTIONS (1)
  - Neoplasm malignant [Unknown]
